FAERS Safety Report 12643217 (Version 3)
Quarter: 2017Q3

REPORT INFORMATION
  Report Type: Spontaneous
  Country: US (occurrence: US)
  Receive Date: 20160811
  Receipt Date: 20170831
  Transmission Date: 20171127
  Serious: Yes (Other)
  Sender: FDA-Public Use
  Company Number: US-ASTRAZENECA-2016SE85190

PATIENT
  Age: 833 Month
  Sex: Female

DRUGS (3)
  1. FASLODEX [Suspect]
     Active Substance: FULVESTRANT
     Route: 030
     Dates: start: 201605
  2. IBRANCE [Suspect]
     Active Substance: PALBOCICLIB
     Indication: BREAST CANCER METASTATIC
     Route: 048
     Dates: start: 20160527
  3. IBRANCE [Suspect]
     Active Substance: PALBOCICLIB
     Indication: BREAST CANCER METASTATIC
     Dosage: 75 MG DAILY FOR 21 DAYS THEN 7 DAYS BREAK
     Route: 048
     Dates: start: 20160527

REACTIONS (14)
  - Dyspnoea [Not Recovered/Not Resolved]
  - Hot flush [Unknown]
  - Vomiting [Unknown]
  - Neutropenia [Not Recovered/Not Resolved]
  - Bone pain [Unknown]
  - Dehydration [Unknown]
  - Anaemia [Not Recovered/Not Resolved]
  - Asthenia [Unknown]
  - Dizziness [Recovered/Resolved]
  - Alopecia [Unknown]
  - Nausea [Unknown]
  - Seizure [Recovered/Resolved]
  - Syncope [Recovered/Resolved]
  - Pruritus [Unknown]

NARRATIVE: CASE EVENT DATE: 201604
